FAERS Safety Report 7797323-5 (Version None)
Quarter: 2011Q4

REPORT INFORMATION
  Report Type: 
  Country: None (occurrence: None)
  Receive Date: 20111005
  Receipt Date: 20111002
  Transmission Date: 20120403
  Serious: No
  Sender: FDA-Public Use
  Company Number: US-PFIZER INC-2011235390

PATIENT
  Sex: Male

DRUGS (1)
  1. LIPITOR [Suspect]
     Dosage: 40 MG, DAILY

REACTIONS (1)
  - ASTHENIA [None]
